FAERS Safety Report 7212878-7 (Version None)
Quarter: 2010Q4

REPORT INFORMATION
  Report Type: 
  Country: None (occurrence: None)
  Receive Date: 20101227
  Receipt Date: 20101209
  Transmission Date: 20110411
  Serious: Yes (Hospitalization)
  Sender: FDA-Public Use
  Company Number: C-10-0286

PATIENT
  Age: 3 Month
  Sex: Female

DRUGS (1)
  1. AMOXICILLIN AND CLAVULANATE POTASSIUM [Suspect]
     Dosage: .5TSP 3X PER DAY

REACTIONS (2)
  - ADVERSE EVENT [None]
  - PRODUCT QUALITY ISSUE [None]
